FAERS Safety Report 24169958 (Version 1)
Quarter: 2024Q3

REPORT INFORMATION
  Report Type: Spontaneous
  Country: US (occurrence: US)
  Receive Date: 20240803
  Receipt Date: 20240803
  Transmission Date: 20241016
  Serious: No
  Sender: AMGEN
  Company Number: US-AMGEN-USASP2024150900

PATIENT
  Sex: Female

DRUGS (1)
  1. ETANERCEPT [Suspect]
     Active Substance: ETANERCEPT
     Indication: Product used for unknown indication
     Dosage: UNK
     Route: 065

REACTIONS (1)
  - Adverse drug reaction [Unknown]
